FAERS Safety Report 15470943 (Version 2)
Quarter: 2018Q4

REPORT INFORMATION
  Report Type: Spontaneous
  Country: DE (occurrence: DE)
  Receive Date: 20181006
  Receipt Date: 20181020
  Transmission Date: 20190205
  Serious: Yes (Other)
  Sender: FDA-Public Use
  Company Number: DE-AUROBINDO-AUR-APL-2018-048172

PATIENT
  Age: 48 Year
  Sex: Female
  Weight: 61 kg

DRUGS (1)
  1. SUMATRIPTAN AUROBINDO TABLETS 100MG [Suspect]
     Active Substance: SUMATRIPTAN
     Indication: MIGRAINE
     Dosage: ONE PER DAY IF NEEDED, RARE TWO TABLETS PER DAY
     Route: 048

REACTIONS (2)
  - Sudden hearing loss [Unknown]
  - Diastolic hypertension [Recovered/Resolved]
